FAERS Safety Report 13813652 (Version 2)
Quarter: 2018Q2

REPORT INFORMATION
  Report Type: Spontaneous
  Country: IT (occurrence: IT)
  Receive Date: 20170731
  Receipt Date: 20180524
  Transmission Date: 20180711
  Serious: Yes (Life-Threatening, Other)
  Sender: FDA-Public Use
  Company Number: IT-BRISTOL-MYERS SQUIBB COMPANY-BMS-2017-064881

PATIENT
  Age: 84 Year
  Sex: Female

DRUGS (2)
  1. FLUXUM [Suspect]
     Active Substance: PARNAPARIN SODIUM
     Indication: EMBOLIC STROKE
     Dosage: 6400 IU, QD
     Route: 058
     Dates: start: 20170709
  2. WARFARIN SODIUM. [Suspect]
     Active Substance: WARFARIN SODIUM
     Indication: EMBOLIC STROKE
     Route: 048

REACTIONS (4)
  - Packed red blood cell transfusion [Unknown]
  - Hypotension [Not Recovered/Not Resolved]
  - Anaemia [Not Recovered/Not Resolved]
  - International normalised ratio increased [Not Recovered/Not Resolved]

NARRATIVE: CASE EVENT DATE: 20170714
